FAERS Safety Report 5904840-9 (Version None)
Quarter: 2008Q4

REPORT INFORMATION
  Report Type: 
  Country: None (occurrence: None)
  Receive Date: 20081001
  Receipt Date: 20080925
  Transmission Date: 20090506
  Serious: Yes (Congenital Anomaly)
  Sender: FDA-Public Use
  Company Number: A0699517A

PATIENT
  Sex: Male

DRUGS (3)
  1. PAXIL [Suspect]
     Indication: DEPRESSION
     Dates: start: 19960101, end: 20031001
  2. VITAMIN TAB [Concomitant]
     Dates: start: 19970101, end: 20040101
  3. AMBIEN [Concomitant]
     Indication: SLEEP DISORDER
     Dates: start: 19960101, end: 20070101

REACTIONS (4)
  - ATRIAL SEPTAL DEFECT [None]
  - DRUG EXPOSURE DURING PREGNANCY [None]
  - MULTIPLE CONGENITAL ABNORMALITIES [None]
  - TRANSPOSITION OF THE GREAT VESSELS [None]
